FAERS Safety Report 7955072-4 (Version None)
Quarter: 2011Q4

REPORT INFORMATION
  Report Type: 
  Country: None (occurrence: None)
  Receive Date: 20111202
  Receipt Date: 20111128
  Transmission Date: 20120403
  Serious: Yes (Other)
  Sender: FDA-Public Use
  Company Number: NL-ROCHE-1017094

PATIENT

DRUGS (2)
  1. TELATINIB MESYLATE [Suspect]
     Indication: NEOPLASM
  2. AVASTIN [Suspect]
     Indication: NEOPLASM
     Route: 042

REACTIONS (13)
  - FATIGUE [None]
  - CARDIAC DISORDER [None]
  - DYSPNOEA [None]
  - PAIN [None]
  - ANAEMIA [None]
  - LIPASE INCREASED [None]
  - ATRIAL FLUTTER [None]
  - INTESTINAL PERFORATION [None]
  - MYOCARDIAL ISCHAEMIA [None]
  - HYPERTENSION [None]
  - LIVER FUNCTION TEST ABNORMAL [None]
  - GASTROINTESTINAL DISORDER [None]
  - ARRHYTHMIA [None]
